FAERS Safety Report 20095156 (Version 3)
Quarter: 2022Q3

REPORT INFORMATION
  Report Type: Report from Study
  Country: CO (occurrence: CO)
  Receive Date: 20211122
  Receipt Date: 20220810
  Transmission Date: 20221026
  Serious: Yes (Other)
  Sender: FDA-Public Use
  Company Number: CO-SA-2021SA383420

PATIENT
  Sex: Male

DRUGS (11)
  1. PRALUENT [Suspect]
     Active Substance: ALIROCUMAB
     Indication: Hypercholesterolaemia
     Dosage: 150 MG, Q15D
     Route: 058
     Dates: start: 20191010, end: 20210130
  2. PRALUENT [Suspect]
     Active Substance: ALIROCUMAB
     Indication: Ischaemic cardiomyopathy
  3. PRALUENT [Suspect]
     Active Substance: ALIROCUMAB
     Indication: Myocardial ischaemia
  4. ROSUVASTATIN [Concomitant]
     Active Substance: ROSUVASTATIN
     Indication: Product used for unknown indication
     Dosage: 40 MG, QD
  5. ROSUVASTATIN [Concomitant]
     Active Substance: ROSUVASTATIN
     Dosage: UNK UNK, QD
  6. CARVEDILOL [Concomitant]
     Active Substance: CARVEDILOL
     Indication: Product used for unknown indication
     Dosage: 6.26 MG, QD
  7. CARVEDILOL [Concomitant]
     Active Substance: CARVEDILOL
     Dosage: 6.26 MG, QD
  8. ASPIRIN [Concomitant]
     Active Substance: ASPIRIN
     Indication: Product used for unknown indication
     Dosage: 100 MG, QD
  9. ASPIRIN [Concomitant]
     Active Substance: ASPIRIN
     Dosage: UNK UNK, QD
  10. AMLODIPINE BESYLATE [Concomitant]
     Active Substance: AMLODIPINE BESYLATE
     Dosage: 5 MG, QD
  11. LOSARTAN [Concomitant]
     Active Substance: LOSARTAN
     Dosage: UNK MG

REACTIONS (12)
  - Angina pectoris [Recovered/Resolved]
  - Discomfort [Recovered/Resolved]
  - Hypertension [Unknown]
  - Malaise [Recovering/Resolving]
  - Feeling hot [Recovered/Resolved]
  - Ill-defined disorder [Unknown]
  - Dizziness [Recovering/Resolving]
  - Haemoptysis [Recovering/Resolving]
  - Product use issue [Unknown]
  - Feeling abnormal [Recovering/Resolving]
  - Heart rate increased [Unknown]
  - Chest pain [Recovering/Resolving]

NARRATIVE: CASE EVENT DATE: 20210101
